FAERS Safety Report 12922205 (Version 1)
Quarter: 2016Q4

REPORT INFORMATION
  Report Type: Spontaneous
  Country: NL (occurrence: NL)
  Receive Date: 20161108
  Receipt Date: 20161108
  Transmission Date: 20170207
  Serious: Yes (Other)
  Sender: FDA-Public Use
  Company Number: NL-ABBVIE-16K-114-1773948-00

PATIENT
  Age: 41 Year
  Sex: Female
  Weight: 67 kg

DRUGS (4)
  1. CALCIUM / VITAMIN D [Concomitant]
     Indication: OSTEOPENIA
     Dosage: 1.25 / 800 IU
     Route: 048
     Dates: start: 1998
  2. HUMIRA [Suspect]
     Active Substance: ADALIMUMAB
     Indication: ANKYLOSING SPONDYLITIS
     Route: 058
     Dates: start: 2008
  3. LEVOCETIRIZINE [Concomitant]
     Active Substance: LEVOCETIRIZINE
     Indication: URTICARIA
     Route: 048
     Dates: start: 2014
  4. AZATHIOPRINE. [Concomitant]
     Active Substance: AZATHIOPRINE
     Indication: CROHN^S DISEASE
     Route: 048
     Dates: start: 2007

REACTIONS (2)
  - Speech disorder [Recovered/Resolved]
  - Transient ischaemic attack [Recovered/Resolved]

NARRATIVE: CASE EVENT DATE: 20161001
